FAERS Safety Report 4471493-9 (Version None)
Quarter: 2004Q4

REPORT INFORMATION
  Report Type: 
  Country: None (occurrence: None)
  Receive Date: 20041012
  Receipt Date: 20040226
  Transmission Date: 20050328
  Serious: Yes (Death, Life-Threatening, Hospitalization)
  Sender: FDA-Public Use
  Company Number: PHHO2004CA03053

PATIENT
  Age: 53 Year
  Sex: Male

DRUGS (5)
  1. CLOZARIL [Suspect]
     Indication: SCHIZOPHRENIA
     Dosage: 150 MG Q AM + 300 MG Q HS
     Route: 048
     Dates: start: 19990308, end: 20040223
  2. LEVAQUIN [Suspect]
     Dosage: 500 MG, QD
     Dates: end: 20040223
  3. ORAP [Concomitant]
     Dosage: 4 MG, BID
     Route: 048
  4. RISPERDAL [Concomitant]
     Dosage: 2 MG Q AM + 4 MG Q HS
     Route: 048
  5. COLACE [Concomitant]
     Dosage: 100 MG Q HS
     Route: 048

REACTIONS (10)
  - ANAEMIA [None]
  - COR PULMONALE [None]
  - COUGH [None]
  - CYANOSIS [None]
  - DRUG INTERACTION [None]
  - DRUG LEVEL INCREASED [None]
  - LOBAR PNEUMONIA [None]
  - NON-SMALL CELL LUNG CANCER METASTATIC [None]
  - PERICARDIAL EFFUSION [None]
  - PLEURAL EFFUSION [None]
